FAERS Safety Report 20032046 (Version 2)
Quarter: 2021Q4

REPORT INFORMATION
  Report Type: Report from Study
  Country: US (occurrence: US)
  Receive Date: 20211103
  Receipt Date: 20211201
  Transmission Date: 20220303
  Serious: Yes (Hospitalization, Other)
  Sender: FDA-Public Use
  Company Number: US-UCBSA-2021050975

PATIENT
  Sex: Female
  Weight: 47.17 kg

DRUGS (1)
  1. LEVETIRACETAM [Suspect]
     Active Substance: LEVETIRACETAM
     Indication: Seizure
     Dosage: 1500 MILLIGRAM, 2X/DAY (BID)

REACTIONS (5)
  - Lung neoplasm malignant [Recovering/Resolving]
  - Lung operation [Recovering/Resolving]
  - Mass [Unknown]
  - Renal cyst [Unknown]
  - Inappropriate schedule of product administration [Unknown]
